FAERS Safety Report 4364887-3 (Version None)
Quarter: 2004Q2

REPORT INFORMATION
  Report Type: 
  Country: None (occurrence: None)
  Receive Date: 20040525
  Receipt Date: 20040525
  Transmission Date: 20050107
  Serious: Yes (Hospitalization)
  Sender: FDA-Public Use
  Company Number: None

PATIENT
  Age: 58 Year
  Sex: Male
  Weight: 82 kg

DRUGS (2)
  1. INTEGRILIN [Suspect]
     Indication: AGE INDETERMINATE MYOCARDIAL INFARCTION
     Dosage: 2 MCG/KG/MIN CONTINUOUS INTRAVENOUS
     Route: 042
     Dates: start: 20040516, end: 20040516
  2. INTEGRILIN [Suspect]
     Indication: CATHETERISATION CARDIAC
     Dosage: 2 MCG/KG/MIN CONTINUOUS INTRAVENOUS
     Route: 042
     Dates: start: 20040516, end: 20040516

REACTIONS (1)
  - PLATELET COUNT DECREASED [None]
